FAERS Safety Report 19814116 (Version 1)
Quarter: 2021Q3

REPORT INFORMATION
  Report Type: Report from Study
  Country: US (occurrence: US)
  Receive Date: 20210910
  Receipt Date: 20210910
  Transmission Date: 20211014
  Serious: Yes (Hospitalization)
  Sender: FDA-Public Use
  Company Number: US-B.I. PHARMACEUTICALS,INC./RIDGEFIELD-2021-BI-118292

PATIENT
  Age: 63 Year
  Sex: Female

DRUGS (3)
  1. OFEV [Suspect]
     Active Substance: NINTEDANIB
     Indication: IDIOPATHIC PULMONARY FIBROSIS
     Dosage: 100MG TWICE DAILY BY MOUTH.
     Route: 048
     Dates: start: 20210714
  2. OFEV [Suspect]
     Active Substance: NINTEDANIB
     Dosage: 300MG DAILY
     Route: 048
     Dates: start: 20210730
  3. OFEV [Suspect]
     Active Substance: NINTEDANIB
     Route: 048
     Dates: end: 2021

REACTIONS (17)
  - Headache [Unknown]
  - Weight decreased [Unknown]
  - Malaise [Unknown]
  - Decreased appetite [Unknown]
  - Lung disorder [Unknown]
  - Heart rate increased [Unknown]
  - Diarrhoea [Unknown]
  - Colitis [Unknown]
  - Vomiting [Unknown]
  - Bowel movement irregularity [Unknown]
  - Haematemesis [Unknown]
  - Dyspnoea [Unknown]
  - Dysuria [Unknown]
  - Nausea [Unknown]
  - Dysgeusia [Unknown]
  - Hypertension [Unknown]
  - Oxygen saturation decreased [Unknown]

NARRATIVE: CASE EVENT DATE: 202107
